FAERS Safety Report 4472578-3 (Version None)
Quarter: 2004Q4

REPORT INFORMATION
  Report Type: 
  Country: None (occurrence: None)
  Receive Date: 20041008
  Receipt Date: 20040927
  Transmission Date: 20050328
  Serious: Yes (Death)
  Sender: FDA-Public Use
  Company Number: 2004071101

PATIENT
  Age: 46 Year

DRUGS (3)
  1. AMLODIPINE [Suspect]
     Indication: ILL-DEFINED DISORDER
  2. CLONIDINE [Suspect]
     Indication: ILL-DEFINED DISORDER
  3. METFORMIN HCL [Suspect]
     Indication: ILL-DEFINED DISORDER

REACTIONS (1)
  - MULTIPLE DRUG OVERDOSE [None]
